FAERS Safety Report 14964009 (Version 1)
Quarter: 2018Q2

REPORT INFORMATION
  Report Type: Spontaneous
  Country: CN (occurrence: CN)
  Receive Date: 20180601
  Receipt Date: 20180601
  Transmission Date: 20180711
  Serious: Yes (Other)
  Sender: FDA-Public Use
  Company Number: CN-GLENMARK PHARMACEUTICALS-2018GMK035795

PATIENT
  Age: 48 Year
  Sex: Female

DRUGS (1)
  1. TRIAMCINOLONE ACETONIDE. [Suspect]
     Active Substance: TRIAMCINOLONE ACETONIDE
     Indication: ENDOCRINE OPHTHALMOPATHY
     Dosage: 20 MG, UNK
     Route: 065

REACTIONS (4)
  - Retinal artery occlusion [Recovering/Resolving]
  - Conjunctival haemorrhage [Recovering/Resolving]
  - Conjunctival oedema [Recovering/Resolving]
  - Blindness [Recovering/Resolving]
